FAERS Safety Report 15753789 (Version 1)
Quarter: 2018Q4

REPORT INFORMATION
  Report Type: Report from Study
  Country: None (occurrence: GB)
  Receive Date: 20181222
  Receipt Date: 20181222
  Transmission Date: 20190205
  Serious: Yes (Death)
  Sender: FDA-Public Use
  Company Number: GB-ABBVIE-18S-167-2597895-00

PATIENT
  Sex: Male

DRUGS (1)
  1. DUODOPA [Suspect]
     Active Substance: CARBIDOPA\LEVODOPA
     Indication: PARKINSON^S DISEASE
     Dosage: 5MG/1ML 20MG/1ML CASSETTE CR IS 5.5 ML AND THE BOLUS IS 2.0 ML
     Route: 050

REACTIONS (4)
  - Asthenia [Unknown]
  - Feeding disorder [Unknown]
  - Death [Fatal]
  - Device issue [Unknown]
